FAERS Safety Report 22354069 (Version 1)
Quarter: 2023Q2

REPORT INFORMATION
  Report Type: Spontaneous
  Country: PL (occurrence: PL)
  Receive Date: 20230523
  Receipt Date: 20230523
  Transmission Date: 20230722
  Serious: Yes (Other)
  Sender: FDA-Public Use
  Company Number: PL-002147023-NVSC2023PL113575

PATIENT
  Sex: Female

DRUGS (1)
  1. METHOTREXATE SODIUM [Suspect]
     Active Substance: METHOTREXATE SODIUM
     Indication: Product used for unknown indication
     Dosage: 5 MG (DRUG STARTED IN JAN)
     Route: 065

REACTIONS (6)
  - Bronchitis [Unknown]
  - Oropharyngeal pain [Not Recovered/Not Resolved]
  - Feeling cold [Not Recovered/Not Resolved]
  - Glossodynia [Not Recovered/Not Resolved]
  - Pharyngitis [Unknown]
  - Stomatitis [Not Recovered/Not Resolved]
